FAERS Safety Report 6191027-0 (Version None)
Quarter: 2009Q2

REPORT INFORMATION
  Report Type: 
  Country: None (occurrence: None)
  Receive Date: 20090513
  Receipt Date: 20090429
  Transmission Date: 20091009
  Serious: Yes (Other)
  Sender: FDA-Public Use
  Company Number: 232658K08USA

PATIENT
  Age: 53 Year
  Sex: Male

DRUGS (5)
  1. REBIF [Suspect]
     Indication: MULTIPLE SCLEROSIS
     Dosage: 44 MCG, 3 IN 1 WEEKS, SUBCUTANEOUS
     Route: 058
     Dates: start: 20080825
  2. MOTRIN [Concomitant]
  3. ALEVE (CAPLET) [Concomitant]
  4. TRAMADOL HCL [Concomitant]
  5. INSULIN (INSULIN /00030501/) [Concomitant]

REACTIONS (1)
  - HEPATIC ENZYME INCREASED [None]
